FAERS Safety Report 9449389 (Version 1)
Quarter: 2013Q3

REPORT INFORMATION
  Report Type: Spontaneous
  Country: IT (occurrence: IT)
  Receive Date: 20130809
  Receipt Date: 20130809
  Transmission Date: 20140515
  Serious: Yes (Other)
  Sender: FDA-Public Use
  Company Number: IT-009507513-1308ITA002881

PATIENT
  Age: 86 Year
  Sex: Female

DRUGS (5)
  1. ALENDROS [Suspect]
     Indication: OSTEOPOROSIS
     Dosage: 70 MG, QD
     Route: 048
     Dates: start: 20130623, end: 20130623
  2. NORVASC [Suspect]
     Indication: HYPERTENSION
     Dosage: 5 MG, QD
     Route: 065
     Dates: start: 20130101, end: 20130623
  3. TRIATEC (RAMIPRIL) [Suspect]
     Indication: HYPERTENSION
     Dosage: 10 MG, QD
     Route: 048
     Dates: start: 20130101, end: 20130623
  4. INDERAL [Concomitant]
     Dosage: UNK
     Route: 048
  5. CALCITROL [Concomitant]
     Dosage: 0.25 MG, UNK
     Route: 048

REACTIONS (2)
  - Hypertensive crisis [Recovering/Resolving]
  - Oliguria [Recovering/Resolving]
